FAERS Safety Report 4485150-6 (Version None)
Quarter: 2004Q4

REPORT INFORMATION
  Report Type: 
  Country: None (occurrence: None)
  Receive Date: 20041026
  Receipt Date: 20031226
  Transmission Date: 20050328
  Serious: No
  Sender: FDA-Public Use
  Company Number: US-BRISTOL-MYERS SQUIBB COMPANY-12465878

PATIENT
  Age: 10 Year
  Sex: Female

DRUGS (5)
  1. GLUCOPHAGE XR [Suspect]
     Dosage: DURATION OF THERAPY:  ^OVER 1 YEAR^
  2. GLYBURIDE [Concomitant]
  3. ATENOLOL [Concomitant]
  4. TRIAMTERENE [Concomitant]
  5. MULTIVITAMIN [Concomitant]

REACTIONS (1)
  - SWELLING FACE [None]
